FAERS Safety Report 17658502 (Version 2)
Quarter: 2020Q2

REPORT INFORMATION
  Report Type: Report from Study
  Country: US (occurrence: US)
  Receive Date: 20200412
  Receipt Date: 20200424
  Transmission Date: 20200713
  Serious: Yes (Other)
  Sender: FDA-Public Use
  Company Number: US-SA-2020SA090783

PATIENT
  Age: 47 Year
  Sex: Male

DRUGS (1)
  1. TERIFLUNOMIDE. [Suspect]
     Active Substance: TERIFLUNOMIDE
     Indication: MULTIPLE SCLEROSIS
     Dosage: 14 MG, QD
     Route: 048
     Dates: start: 20180912

REACTIONS (17)
  - Multiple sclerosis [Not Recovered/Not Resolved]
  - Throat clearing [Not Recovered/Not Resolved]
  - Energy increased [Unknown]
  - Asthenia [Unknown]
  - Alopecia [Unknown]
  - Fall [Recovered/Resolved]
  - Balance disorder [Unknown]
  - Vocal cord disorder [Not Recovered/Not Resolved]
  - Unevaluable event [Unknown]
  - Vitamin D decreased [Unknown]
  - Oropharyngeal discomfort [Not Recovered/Not Resolved]
  - Tooth fracture [Recovered/Resolved]
  - Cough [Not Recovered/Not Resolved]
  - Eructation [Not Recovered/Not Resolved]
  - Fracture [Recovered/Resolved]
  - Dry skin [Unknown]
  - Surgery [Unknown]

NARRATIVE: CASE EVENT DATE: 201809
